FAERS Safety Report 16467644 (Version 1)
Quarter: 2019Q2

REPORT INFORMATION
  Report Type: Spontaneous
  Country: GB (occurrence: GB)
  Receive Date: 20190624
  Receipt Date: 20190624
  Transmission Date: 20190711
  Serious: Yes (Death, Other)
  Sender: FDA-Public Use
  Company Number: GB-AUROBINDO-AUR-APL-2019-035345

PATIENT

DRUGS (6)
  1. VANCOMYCIN [Concomitant]
     Active Substance: VANCOMYCIN
     Indication: ALLOGENIC STEM CELL TRANSPLANTATION
     Dosage: 150 MILLIGRAM, ONCE A DAY
     Route: 042
     Dates: start: 20180309, end: 20180309
  2. POSACONAZOLE [Concomitant]
     Active Substance: POSACONAZOLE
     Indication: ALLOGENIC STEM CELL TRANSPLANTATION
     Dosage: 300 MILLIGRAM, ONCE A DAY
     Route: 048
     Dates: start: 20180215, end: 20180228
  3. MEROPENEM. [Concomitant]
     Active Substance: MEROPENEM
     Indication: ALLOGENIC STEM CELL TRANSPLANTATION
     Dosage: 3 GRAM, ONCE A DAY
     Route: 042
     Dates: start: 20180221, end: 20180309
  4. AMBISOME [Concomitant]
     Active Substance: AMPHOTERICIN B
     Indication: ALLOGENIC STEM CELL TRANSPLANTATION
     Dosage: MONDAY, WEDNESDAY, FRIDAY
     Route: 042
     Dates: start: 20180228, end: 20180309
  5. ONDANSETRON [Suspect]
     Active Substance: ONDANSETRON
     Indication: NAUSEA
     Dosage: 8 MILLIGRAM
     Route: 042
     Dates: start: 20180214, end: 20180309
  6. OMEPRAZOLE. [Concomitant]
     Active Substance: OMEPRAZOLE
     Indication: ALLOGENIC STEM CELL TRANSPLANTATION
     Dosage: 20 MILLIGRAM, ONCE A DAY
     Route: 042
     Dates: start: 20180219, end: 20180309

REACTIONS (2)
  - Pulseless electrical activity [Fatal]
  - Malaise [Not Recovered/Not Resolved]

NARRATIVE: CASE EVENT DATE: 20190309
